FAERS Safety Report 8391307-4 (Version None)
Quarter: 2012Q2

REPORT INFORMATION
  Report Type: 
  Country: None (occurrence: None)
  Receive Date: 20120529
  Receipt Date: 20111215
  Transmission Date: 20120825
  Serious: No
  Sender: FDA-Public Use
  Company Number: US-ABBOTT-11P-163-0884545-00

PATIENT
  Sex: Female
  Weight: 74.91 kg

DRUGS (19)
  1. DILTIAZEM [Concomitant]
     Indication: CARDIOVASCULAR DISORDER
  2. DILTIAZEM [Concomitant]
     Indication: CARDIAC FIBRILLATION
  3. FEUROSEMIDE [Concomitant]
     Indication: RENAL DISORDER
  4. SENNA-MINT WAF [Concomitant]
     Indication: LAXATIVE SUPPORTIVE CARE
  5. VITAMIN D [Concomitant]
     Indication: SUPPLEMENTATION THERAPY
  6. SYMBICORT [Concomitant]
     Indication: ASTHMA
  7. ASPIRIN [Concomitant]
     Indication: CARDIAC DISORDER
     Dosage: 81 MG DAILY
  8. GEMFIBROZIL [Concomitant]
     Indication: BLOOD CHOLESTEROL
  9. VITAMIN B-12 [Concomitant]
     Indication: SUPPLEMENTATION THERAPY
  10. WAL-MUCIL [Concomitant]
     Indication: LAXATIVE SUPPORTIVE CARE
  11. ZEMPLAR [Suspect]
     Indication: HYPERPARATHYROIDISM SECONDARY
     Dates: start: 20110101
  12. FISH OIL [Concomitant]
     Indication: PRODUCT USED FOR UNKNOWN INDICATION
  13. IRON SLOW RELEASE [Concomitant]
     Indication: ANAEMIA
  14. LISINOPRIL [Concomitant]
     Indication: HYPERTENSION
  15. ACTOS [Concomitant]
     Indication: DIABETES MELLITUS
  16. VITAMIN-MINERAL COMPOUND TAB [Concomitant]
     Indication: MACULAR DEGENERATION
  17. SYNTHROID [Concomitant]
     Indication: HYPOTHYROIDISM
  18. ZEMPLAR [Suspect]
     Dates: start: 20110101, end: 20110101
  19. CALCIUM [Concomitant]
     Indication: MINERAL SUPPLEMENTATION

REACTIONS (1)
  - DIZZINESS [None]
